FAERS Safety Report 20639154 (Version 1)
Quarter: 2022Q1

REPORT INFORMATION
  Report Type: Spontaneous
  Country: IT (occurrence: IT)
  Receive Date: 20220326
  Receipt Date: 20220326
  Transmission Date: 20220423
  Serious: Yes (Other)
  Sender: FDA-Public Use
  Company Number: IT-NOVARTISPH-NVSC2022IT064580

PATIENT
  Sex: Female

DRUGS (3)
  1. LEVETIRACETAM [Suspect]
     Active Substance: LEVETIRACETAM
     Indication: Product used for unknown indication
     Dosage: 1000 MG, QD (500 MILLIGRAM, 2X/DAY (BID))
     Route: 065
  2. LEVETIRACETAM [Suspect]
     Active Substance: LEVETIRACETAM
     Dosage: 1000 MG, QD (500 MILLIGRAM, 2X/DAY (BID))
     Route: 065
     Dates: start: 201611
  3. LEVETIRACETAM [Suspect]
     Active Substance: LEVETIRACETAM
     Dosage: 500 MG, QD (500 MILLIGRAM, ONCE DAILY (QD) (AT NIGHT BEFORE BED))
     Route: 065
     Dates: start: 201611

REACTIONS (10)
  - Embolism [Unknown]
  - Mitral valve disease [Unknown]
  - Seizure [Unknown]
  - Memory impairment [Unknown]
  - Irritability [Unknown]
  - Stress [Unknown]
  - Nervousness [Unknown]
  - Impulse-control disorder [Unknown]
  - Drug ineffective [Unknown]
  - Intentional product use issue [Unknown]

NARRATIVE: CASE EVENT DATE: 20161101
